FAERS Safety Report 25247354 (Version 1)
Quarter: 2025Q2

REPORT INFORMATION
  Report Type: Spontaneous
  Country: US (occurrence: US)
  Receive Date: 20250428
  Receipt Date: 20250428
  Transmission Date: 20250716
  Serious: No
  Sender: ALKERMES
  Company Number: US-ALKERMES INC.-ALK-2025-001057

PATIENT
  Age: 77 Year
  Sex: Male

DRUGS (3)
  1. LYBALVI [Suspect]
     Active Substance: OLANZAPINE\SAMIDORPHAN L-MALATE
     Indication: Bipolar II disorder
     Route: 048
     Dates: start: 20250318
  2. OLANZAPINE [Concomitant]
     Active Substance: OLANZAPINE
     Indication: Bipolar II disorder
     Route: 065
     Dates: start: 202503
  3. OLANZAPINE [Concomitant]
     Active Substance: OLANZAPINE
     Dates: start: 202406, end: 202502

REACTIONS (3)
  - Gait disturbance [Recovered/Resolved]
  - Off label use [Recovered/Resolved]
  - Dizziness [Recovered/Resolved]

NARRATIVE: CASE EVENT DATE: 20250301
